FAERS Safety Report 18898692 (Version 1)
Quarter: 2021Q1

REPORT INFORMATION
  Report Type: Spontaneous
  Country: US (occurrence: US)
  Receive Date: 20210215
  Receipt Date: 20210215
  Transmission Date: 20210420
  Serious: Yes (Death)
  Sender: FDA-Public Use
  Company Number: None

PATIENT
  Age: 89 Year
  Sex: Male

DRUGS (1)
  1. CYCLOSPORINE MODIFIED [Suspect]
     Active Substance: CYCLOSPORINE
     Indication: APLASTIC ANAEMIA
     Route: 048
     Dates: start: 20201215, end: 20210111

REACTIONS (7)
  - Fall [None]
  - Blood count abnormal [None]
  - Gait disturbance [None]
  - Adverse drug reaction [None]
  - Muscular weakness [None]
  - Disease complication [None]
  - Platelet count abnormal [None]

NARRATIVE: CASE EVENT DATE: 202102
